FAERS Safety Report 15168606 (Version 4)
Quarter: 2019Q2

REPORT INFORMATION
  Report Type: Report from Study
  Country: IT (occurrence: IT)
  Receive Date: 20180719
  Receipt Date: 20190404
  Transmission Date: 20190711
  Serious: Yes (Hospitalization)
  Sender: FDA-Public Use
  Company Number: IT-ALEXION PHARMACEUTICALS INC.-A201809251

PATIENT
  Age: 44 Year
  Sex: Female
  Weight: 70 kg

DRUGS (12)
  1. ALGHEDON [Concomitant]
     Dosage: 50 ?G, EVERY 3 DAYS
     Route: 062
  2. MORPHIN                            /00036303/ [Concomitant]
     Active Substance: MORPHINE
     Indication: PAIN
     Dosage: UNK UNK, PRN
     Route: 045
  3. ATENOLOL. [Concomitant]
     Active Substance: ATENOLOL
     Indication: PRODUCT USED FOR UNKNOWN INDICATION
     Dosage: 50 MG, QD (MORNING)
     Route: 065
  4. STRENSIQ [Suspect]
     Active Substance: ASFOTASE ALFA
     Dosage: 0.8 ML, ON ALTERNATE DAYS
     Route: 058
  5. LIDOCAIN                           /00033401/ [Concomitant]
     Active Substance: LIDOCAINE
     Indication: PAIN
     Dosage: 5 %, BID
     Route: 062
  6. ALGHEDON [Concomitant]
     Dosage: 50 MG, BID
     Route: 065
  7. ALGHEDON [Concomitant]
     Indication: PAIN
     Dosage: UNK, TWICE PER WEEK
     Route: 062
  8. STRENSIQ [Suspect]
     Active Substance: ASFOTASE ALFA
     Indication: HYPOPHOSPHATASIA
     Dosage: 80 MG, SIX TIMES/WEEK
     Route: 058
     Dates: start: 20171214, end: 20180125
  9. COLCHICINA [Concomitant]
     Active Substance: COLCHICINE
     Indication: GOUT
     Dosage: UNK
     Route: 048
  10. STRENSIQ [Suspect]
     Active Substance: ASFOTASE ALFA
     Dosage: 70 MG/KG, SIX TIMES/WEEK
     Route: 058
     Dates: start: 20180126, end: 20180204
  11. PALEXIA [Concomitant]
     Active Substance: TAPENTADOL HYDROCHLORIDE
     Indication: PAIN
     Dosage: 100 MG, BID
     Route: 048
  12. PANTOPRAZOLO [Concomitant]
     Active Substance: PANTOPRAZOLE SODIUM
     Indication: PROPHYLAXIS AGAINST GASTROINTESTINAL ULCER
     Dosage: 20 MG, QD (MORNING)
     Route: 048

REACTIONS (1)
  - Chest discomfort [Recovered/Resolved]

NARRATIVE: CASE EVENT DATE: 20171214
